FAERS Safety Report 21772950 (Version 1)
Quarter: 2022Q4

REPORT INFORMATION
  Report Type: Spontaneous
  Country: US (occurrence: None)
  Receive Date: 20221223
  Receipt Date: 20221223
  Transmission Date: 20230112
  Serious: Yes (unspecified)
  Sender: FDA-Public Use
  Company Number: None

PATIENT
  Age: 85 Year
  Sex: Female
  Weight: 73.35 kg

DRUGS (15)
  1. VEKLURY [Suspect]
     Active Substance: REMDESIVIR
     Indication: COVID-19
     Dosage: FREQUENCY : DAILY;?
     Route: 042
     Dates: start: 20221213, end: 20221222
  2. Januvia 25 mg [Concomitant]
  3. timolol opthalmic 0.5% solution [Concomitant]
  4. KlorCon 10 mEq tablet [Concomitant]
  5. Levaquin 250 mg tablet [Concomitant]
  6. ALBUTEROL [Concomitant]
     Active Substance: ALBUTEROL
  7. Cetirizine 10 mg tablet [Concomitant]
  8. ATORVASTATIN [Concomitant]
     Active Substance: ATORVASTATIN
  9. warfarin 2 mg tablet [Concomitant]
  10. Symbicort 80/4.5 mcg inhaler [Concomitant]
  11. lisinopril 2.5 mg tablet [Concomitant]
  12. levothyroxine 100 mcg tablet [Concomitant]
  13. Flonase 50 mcg nasal spray [Concomitant]
  14. Toprol XL 50 mg [Concomitant]
  15. DITROPAN XL [Concomitant]
     Active Substance: OXYBUTYNIN CHLORIDE

REACTIONS (3)
  - Tremor [None]
  - Dizziness [None]
  - Blood pressure decreased [None]

NARRATIVE: CASE EVENT DATE: 20221222
